FAERS Safety Report 7065957-1 (Version None)
Quarter: 2010Q4

REPORT INFORMATION
  Report Type: 
  Country: None (occurrence: None)
  Receive Date: 20101027
  Receipt Date: 20080602
  Transmission Date: 20110411
  Serious: No
  Sender: FDA-Public Use
  Company Number: HQ5694109DEC2002

PATIENT
  Sex: Female

DRUGS (1)
  1. PREMPRO [Suspect]
     Dosage: 0.625MG/UNSPECIFIED
     Route: 048

REACTIONS (2)
  - BREAST DISORDER [None]
  - UTERINE DISORDER [None]
